FAERS Safety Report 25937116 (Version 1)
Quarter: 2025Q4

REPORT INFORMATION
  Report Type: Spontaneous
  Country: GB (occurrence: GB)
  Receive Date: 20251017
  Receipt Date: 20251017
  Transmission Date: 20260118
  Serious: Yes (Hospitalization, Other)
  Sender: MYLAN
  Company Number: GB-MHRA-37326950

PATIENT
  Age: 58 Year
  Sex: Male

DRUGS (52)
  1. PREGABALIN [Suspect]
     Active Substance: PREGABALIN
     Indication: Product used for unknown indication
     Dosage: 75 MILLIGRAM
  2. PREGABALIN [Suspect]
     Active Substance: PREGABALIN
     Dosage: 75 MILLIGRAM
     Route: 065
  3. PREGABALIN [Suspect]
     Active Substance: PREGABALIN
     Dosage: 75 MILLIGRAM
     Route: 065
  4. PREGABALIN [Suspect]
     Active Substance: PREGABALIN
     Dosage: 75 MILLIGRAM
  5. MEROPENEM [Suspect]
     Active Substance: MEROPENEM
     Indication: Product used for unknown indication
     Dosage: 1 GRAM (18 DOSES OF MEROPENEM 1 GRAM INTRAVENOUS BOLUS INJECTIONS (VIALS))
     Dates: start: 20250930, end: 20251006
  6. MEROPENEM [Suspect]
     Active Substance: MEROPENEM
     Dosage: 1 GRAM (18 DOSES OF MEROPENEM 1 GRAM INTRAVENOUS BOLUS INJECTIONS (VIALS))
     Route: 042
     Dates: start: 20250930, end: 20251006
  7. MEROPENEM [Suspect]
     Active Substance: MEROPENEM
     Dosage: 1 GRAM (18 DOSES OF MEROPENEM 1 GRAM INTRAVENOUS BOLUS INJECTIONS (VIALS))
     Route: 042
     Dates: start: 20250930, end: 20251006
  8. MEROPENEM [Suspect]
     Active Substance: MEROPENEM
     Dosage: 1 GRAM (18 DOSES OF MEROPENEM 1 GRAM INTRAVENOUS BOLUS INJECTIONS (VIALS))
     Dates: start: 20250930, end: 20251006
  9. ATORVASTATIN [Concomitant]
     Active Substance: ATORVASTATIN
     Dosage: 80 MILLIGRAM
  10. ATORVASTATIN [Concomitant]
     Active Substance: ATORVASTATIN
     Dosage: 80 MILLIGRAM
     Route: 065
  11. ATORVASTATIN [Concomitant]
     Active Substance: ATORVASTATIN
     Dosage: 80 MILLIGRAM
     Route: 065
  12. ATORVASTATIN [Concomitant]
     Active Substance: ATORVASTATIN
     Dosage: 80 MILLIGRAM
  13. ACETAMINOPHEN [Concomitant]
     Active Substance: ACETAMINOPHEN
     Dosage: UNK (500MG/50ML VIALS)
  14. ACETAMINOPHEN [Concomitant]
     Active Substance: ACETAMINOPHEN
     Dosage: UNK (500MG/50ML VIALS)
     Route: 065
  15. ACETAMINOPHEN [Concomitant]
     Active Substance: ACETAMINOPHEN
     Dosage: UNK (500MG/50ML VIALS)
     Route: 065
  16. ACETAMINOPHEN [Concomitant]
     Active Substance: ACETAMINOPHEN
     Dosage: UNK (500MG/50ML VIALS)
  17. AMIKACIN [Concomitant]
     Active Substance: AMIKACIN
     Dosage: UNK (100MG/2ML VIALS)
  18. AMIKACIN [Concomitant]
     Active Substance: AMIKACIN
     Dosage: UNK (100MG/2ML VIALS)
  19. AMIKACIN [Concomitant]
     Active Substance: AMIKACIN
     Dosage: UNK (100MG/2ML VIALS)
     Route: 065
  20. AMIKACIN [Concomitant]
     Active Substance: AMIKACIN
     Dosage: UNK (100MG/2ML VIALS)
     Route: 065
  21. AMIKACIN [Concomitant]
     Active Substance: AMIKACIN
     Dosage: UNK (500MG/2ML)
  22. AMIKACIN [Concomitant]
     Active Substance: AMIKACIN
     Dosage: UNK (500MG/2ML)
  23. AMIKACIN [Concomitant]
     Active Substance: AMIKACIN
     Dosage: UNK (500MG/2ML)
     Route: 065
  24. AMIKACIN [Concomitant]
     Active Substance: AMIKACIN
     Dosage: UNK (500MG/2ML)
     Route: 065
  25. CIPROFLOXACIN [Concomitant]
     Active Substance: CIPROFLOXACIN
     Dosage: UNK
  26. CIPROFLOXACIN [Concomitant]
     Active Substance: CIPROFLOXACIN
     Dosage: UNK
     Route: 065
  27. CIPROFLOXACIN [Concomitant]
     Active Substance: CIPROFLOXACIN
     Dosage: UNK
     Route: 065
  28. CIPROFLOXACIN [Concomitant]
     Active Substance: CIPROFLOXACIN
     Dosage: UNK
  29. BISOPROLOL [Concomitant]
     Active Substance: BISOPROLOL
     Dosage: 1.25 MILLIGRAM
  30. BISOPROLOL [Concomitant]
     Active Substance: BISOPROLOL
     Dosage: 1.25 MILLIGRAM
     Route: 065
  31. BISOPROLOL [Concomitant]
     Active Substance: BISOPROLOL
     Dosage: 1.25 MILLIGRAM
     Route: 065
  32. BISOPROLOL [Concomitant]
     Active Substance: BISOPROLOL
     Dosage: 1.25 MILLIGRAM
  33. TEICOPLANIN [Concomitant]
     Active Substance: TEICOPLANIN
     Dosage: 400 MILLIGRAM (VIALS)
  34. TEICOPLANIN [Concomitant]
     Active Substance: TEICOPLANIN
     Dosage: 400 MILLIGRAM (VIALS)
     Route: 065
  35. TEICOPLANIN [Concomitant]
     Active Substance: TEICOPLANIN
     Dosage: 400 MILLIGRAM (VIALS)
     Route: 065
  36. TEICOPLANIN [Concomitant]
     Active Substance: TEICOPLANIN
     Dosage: 400 MILLIGRAM (VIALS)
  37. MAGNESIUM ASPARTATE [Concomitant]
     Active Substance: MAGNESIUM ASPARTATE
     Dosage: UNK (SACHETS)
  38. MAGNESIUM ASPARTATE [Concomitant]
     Active Substance: MAGNESIUM ASPARTATE
     Dosage: UNK (SACHETS)
     Route: 065
  39. MAGNESIUM ASPARTATE [Concomitant]
     Active Substance: MAGNESIUM ASPARTATE
     Dosage: UNK (SACHETS)
     Route: 065
  40. MAGNESIUM ASPARTATE [Concomitant]
     Active Substance: MAGNESIUM ASPARTATE
     Dosage: UNK (SACHETS)
  41. ENOXAPARIN SODIUM [Concomitant]
     Active Substance: ENOXAPARIN SODIUM
     Dosage: 40 MILLIGRAM (40MG/0.4ML PRE-FILLED SYRINGES)
  42. ENOXAPARIN SODIUM [Concomitant]
     Active Substance: ENOXAPARIN SODIUM
     Dosage: 40 MILLIGRAM (40MG/0.4ML PRE-FILLED SYRINGES)
     Route: 058
  43. ENOXAPARIN SODIUM [Concomitant]
     Active Substance: ENOXAPARIN SODIUM
     Dosage: 40 MILLIGRAM (40MG/0.4ML PRE-FILLED SYRINGES)
     Route: 058
  44. ENOXAPARIN SODIUM [Concomitant]
     Active Substance: ENOXAPARIN SODIUM
     Dosage: 40 MILLIGRAM (40MG/0.4ML PRE-FILLED SYRINGES)
  45. OMEPRAZOLE [Concomitant]
     Active Substance: OMEPRAZOLE
     Dosage: 40 MILLIGRAM (VIALS)
  46. OMEPRAZOLE [Concomitant]
     Active Substance: OMEPRAZOLE
     Dosage: 40 MILLIGRAM (VIALS)
     Route: 065
  47. OMEPRAZOLE [Concomitant]
     Active Substance: OMEPRAZOLE
     Dosage: 40 MILLIGRAM (VIALS)
     Route: 065
  48. OMEPRAZOLE [Concomitant]
     Active Substance: OMEPRAZOLE
     Dosage: 40 MILLIGRAM (VIALS)
  49. ASPIRIN [Concomitant]
     Active Substance: ASPIRIN
     Dosage: 75 MILLIGRAM
  50. ASPIRIN [Concomitant]
     Active Substance: ASPIRIN
     Dosage: 75 MILLIGRAM
     Route: 065
  51. ASPIRIN [Concomitant]
     Active Substance: ASPIRIN
     Dosage: 75 MILLIGRAM
     Route: 065
  52. ASPIRIN [Concomitant]
     Active Substance: ASPIRIN
     Dosage: 75 MILLIGRAM

REACTIONS (3)
  - Sepsis [Unknown]
  - Thrombocytopenia [Not Recovered/Not Resolved]
  - Pyrexia [Unknown]

NARRATIVE: CASE EVENT DATE: 20250930
